FAERS Safety Report 9649011 (Version 1)
Quarter: 2013Q4

REPORT INFORMATION
  Report Type: Report from Study
  Country: GR (occurrence: GR)
  Receive Date: 20131028
  Receipt Date: 20131028
  Transmission Date: 20140711
  Serious: Yes (Death)
  Sender: FDA-Public Use
  Company Number: US-ASTELLAS-2013US011061

PATIENT
  Age: 78 Year
  Sex: Female

DRUGS (3)
  1. ERLOTINIB TABLET [Suspect]
     Indication: NON-SMALL CELL LUNG CANCER
     Dosage: 150 MG, UID/QD
     Route: 065
     Dates: start: 201001
  2. ERLOTINIB TABLET [Suspect]
     Dosage: 100 MG, UID/QD
     Route: 065
     Dates: end: 201006
  3. LEVOTHYROXIN [Concomitant]
     Indication: THYROID HORMONE REPLACEMENT THERAPY
     Dosage: 150 UG, UNKNOWN/D
     Route: 065

REACTIONS (3)
  - Chronic obstructive pulmonary disease [Fatal]
  - Diarrhoea [Unknown]
  - Mucosal inflammation [Unknown]
